FAERS Safety Report 6728199-2 (Version None)
Quarter: 2010Q2

REPORT INFORMATION
  Report Type: 
  Country: None (occurrence: None)
  Receive Date: 20100517
  Receipt Date: 20100504
  Transmission Date: 20101027
  Serious: Yes (Hospitalization)
  Sender: FDA-Public Use
  Company Number: B0652810A

PATIENT
  Sex: Male

DRUGS (14)
  1. MELPHALAN HYDROCHLORIDE [Suspect]
     Indication: MULTIPLE MYELOMA
     Dates: start: 20100210
  2. THALIDOMIDE [Suspect]
     Indication: MULTIPLE MYELOMA
     Route: 048
     Dates: start: 20100210
  3. PREDNISONE [Suspect]
     Indication: MULTIPLE MYELOMA
     Dosage: 130MG PER DAY
     Dates: start: 20100210
  4. BACTRIM [Concomitant]
     Dosage: .42UNIT EVERY 3 WEEKS
     Route: 048
  5. SPECIAFOLDINE [Concomitant]
     Indication: INFECTION PROPHYLAXIS
     Dosage: 5MG PER DAY
     Route: 048
  6. ZELITREX [Concomitant]
     Indication: INFECTION PROPHYLAXIS
     Dosage: 500MG PER DAY
     Route: 048
     Dates: start: 20100210
  7. RIMIFON [Concomitant]
     Indication: PROPHYLAXIS
     Dosage: 300MG PER DAY
     Route: 048
     Dates: start: 20100127
  8. HYZAAR [Concomitant]
     Dosage: 300MG PER DAY
     Route: 048
     Dates: start: 19970101
  9. ASPEGIC 1000 [Concomitant]
     Indication: THROMBOSIS PROPHYLAXIS
     Dosage: 150MG PER DAY
     Route: 048
     Dates: start: 20100210, end: 20100222
  10. NEORECORMON [Concomitant]
     Dosage: 4285.71IU WEEKLY
     Route: 058
     Dates: start: 20100210
  11. ZOPHREN [Concomitant]
     Indication: PROPHYLAXIS
     Dosage: 8MG PER DAY
     Route: 048
     Dates: start: 20100210, end: 20100214
  12. NULYTELY [Concomitant]
     Indication: CONSTIPATION PROPHYLAXIS
     Dosage: 2PACK PER DAY
     Route: 048
     Dates: start: 20100210, end: 20100222
  13. FUNGIZONE [Concomitant]
  14. VITAMIN B6 [Concomitant]

REACTIONS (6)
  - CHILLS [None]
  - ENDOCARDITIS [None]
  - MITRAL VALVE INCOMPETENCE [None]
  - PYREXIA [None]
  - SEPTIC SHOCK [None]
  - VERTIGO [None]
